FAERS Safety Report 12841142 (Version 2)
Quarter: 2016Q4

REPORT INFORMATION
  Report Type: Report from Study
  Country: JP (occurrence: JP)
  Receive Date: 20161012
  Receipt Date: 20161128
  Transmission Date: 20170207
  Serious: Yes (Other)
  Sender: FDA-Public Use
  Company Number: JP-MYLANLABS-2016M1043248

PATIENT

DRUGS (2)
  1. PEMETREXED [Suspect]
     Active Substance: PEMETREXED
     Indication: NON-SMALL CELL LUNG CANCER
     Dosage: 500 MG/M2 WITHIN 10 MINUTES ON DAY1 OF THE 21DAY CYCLE
     Route: 041
  2. CARBOPLATIN MYLAN [Suspect]
     Active Substance: CARBOPLATIN
     Indication: NON-SMALL CELL LUNG CANCER
     Dosage: OVER AT-LEAST 30MINUTES TO GIVE AN AUC OF 5 ON DAY1 OF THE 21DAY CYCLE
     Route: 041

REACTIONS (3)
  - Febrile neutropenia [Unknown]
  - Urticaria [Unknown]
  - Thrombocytopenia [Unknown]
